FAERS Safety Report 4291330-5 (Version None)
Quarter: 2004Q1

REPORT INFORMATION
  Report Type: 
  Country: None (occurrence: None)
  Receive Date: 20040211
  Receipt Date: 20031208
  Transmission Date: 20041129
  Serious: No
  Sender: FDA-Public Use
  Company Number: US-GLAXOSMITHKLINE-A0443058A

PATIENT
  Age: 50 Year
  Sex: Female
  Weight: 77.3 kg

DRUGS (2)
  1. PAXIL [Suspect]
     Route: 048
  2. SYNTHROID [Suspect]
     Indication: THYROID DISORDER
     Dosage: .1MG UNKNOWN
     Route: 048
     Dates: start: 20020101

REACTIONS (4)
  - DRUG WITHDRAWAL SYNDROME [None]
  - FEELING ABNORMAL [None]
  - NAUSEA [None]
  - WEIGHT INCREASED [None]
